FAERS Safety Report 8241753-4 (Version None)
Quarter: 2012Q1

REPORT INFORMATION
  Report Type: 
  Country: None (occurrence: None)
  Receive Date: 20120328
  Receipt Date: 20120316
  Transmission Date: 20120608
  Serious: Yes (Hospitalization)
  Sender: FDA-Public Use
  Company Number: DE-ROCHE-1049635

PATIENT
  Sex: Male

DRUGS (1)
  1. MABTHERA [Suspect]
     Indication: B-CELL LYMPHOMA
     Dosage: DATE OF ALST DOSE PRIOR TO SAE: 11 FEB 2009
     Dates: start: 20080909

REACTIONS (2)
  - BILE DUCT CANCER [None]
  - JAUNDICE [None]
